FAERS Safety Report 8279093 (Version 2)
Quarter: 2013Q1

REPORT INFORMATION
  Report Type: Spontaneous
  Country: US (occurrence: US)
  Receive Date: 20111208
  Receipt Date: 20130325
  Transmission Date: 20140127
  Serious: No
  Sender: FDA-Public Use
  Company Number: US-BAYER-2011-110833

PATIENT
  Age: 76 Year
  Sex: Female
  Weight: 71.2 kg

DRUGS (3)
  1. ALEVE CAPLET/TABLET,MIDOL EXTENDED RELIEF CAPLET [Suspect]
     Dosage: 2 TABS QD
     Route: 048
     Dates: start: 20111101
  2. MIRAPEX [Concomitant]
  3. PRAMIPEXOLE [Concomitant]

REACTIONS (4)
  - Restless legs syndrome [Unknown]
  - Analgesic therapy [Unknown]
  - Back disorder [Unknown]
  - Therapeutic response unexpected [None]
